FAERS Safety Report 7005024-6 (Version None)
Quarter: 2010Q3

REPORT INFORMATION
  Report Type: 
  Country: None (occurrence: None)
  Receive Date: 20100920
  Receipt Date: 20100920
  Transmission Date: 20110219
  Serious: Yes (Hospitalization)
  Sender: FDA-Public Use
  Company Number: None

PATIENT
  Age: 87 Year
  Sex: Male

DRUGS (1)
  1. GALANTAMINE HYDROBROMIDE [Suspect]
     Indication: DEMENTIA
     Dosage: 16 MG AM PO
     Route: 048
     Dates: start: 20100828, end: 20100901

REACTIONS (3)
  - ASPIRATION [None]
  - BRADYCARDIA [None]
  - SYNCOPE [None]
